FAERS Safety Report 24072742 (Version 1)
Quarter: 2024Q3

REPORT INFORMATION
  Report Type: Spontaneous
  Country: US (occurrence: US)
  Receive Date: 20240710
  Receipt Date: 20240710
  Transmission Date: 20241016
  Serious: No
  Sender: BANNER
  Company Number: US-PTA-005701

PATIENT
  Sex: Female

DRUGS (2)
  1. NAPROXEN [Suspect]
     Active Substance: NAPROXEN
     Indication: Neck pain
     Dosage: 2 CAPSULES
     Route: 048
  2. NAPROXEN [Suspect]
     Active Substance: NAPROXEN
     Indication: Pain
     Dosage: 2 CAPSULES
     Route: 048

REACTIONS (1)
  - Incorrect product administration duration [Unknown]
